FAERS Safety Report 24916453 (Version 1)
Quarter: 2025Q1

REPORT INFORMATION
  Report Type: Spontaneous
  Country: NL (occurrence: NL)
  Receive Date: 20250203
  Receipt Date: 20250203
  Transmission Date: 20250408
  Serious: Yes (Other)
  Sender: MYLAN
  Company Number: NL-MYLANLABS-2024M1113887

PATIENT
  Age: 83 Year
  Sex: Male
  Weight: 76 kg

DRUGS (1)
  1. ARIXTRA [Suspect]
     Active Substance: FONDAPARINUX SODIUM
     Indication: Bacterial infection
     Route: 058

REACTIONS (7)
  - Pneumonia [Unknown]
  - Skin hypertrophy [Unknown]
  - Pain in extremity [Not Recovered/Not Resolved]
  - Peripheral swelling [Not Recovered/Not Resolved]
  - Mobility decreased [Not Recovered/Not Resolved]
  - Influenza [Unknown]
  - Fluid retention [Unknown]
